FAERS Safety Report 8995460 (Version 1)
Quarter: 2013Q1

REPORT INFORMATION
  Report Type: Spontaneous
  Country: CA (occurrence: CA)
  Receive Date: 20130103
  Receipt Date: 20130103
  Transmission Date: 20140127
  Serious: No
  Sender: FDA-Public Use
  Company Number: US-ABBOTT-12P-163-0915804-00

PATIENT
  Sex: Female
  Weight: 86.26 kg

DRUGS (1)
  1. SYNTHROID [Suspect]
     Indication: HYPOTHYROIDISM
     Dates: start: 2002, end: 2011

REACTIONS (4)
  - Hypersensitivity [Unknown]
  - Bladder pain [Recovering/Resolving]
  - Micturition urgency [Recovering/Resolving]
  - Cystitis interstitial [Recovering/Resolving]
